FAERS Safety Report 17930171 (Version 13)
Quarter: 2020Q4

REPORT INFORMATION
  Report Type: Report from Study
  Country: FR (occurrence: FR)
  Receive Date: 20200623
  Receipt Date: 20201209
  Transmission Date: 20210113
  Serious: Yes (Hospitalization)
  Sender: FDA-Public Use
  Company Number: FR-EISAI MEDICAL RESEARCH-EC-2020-076317

PATIENT
  Age: 68 Year
  Sex: Male
  Weight: 78.6 kg

DRUGS (11)
  1. KARDEGIC [Concomitant]
     Active Substance: ASPIRIN DL-LYSINE
     Dates: start: 201911
  2. DALIBOUR COOPER [Concomitant]
     Dates: start: 20200109
  3. LENVATINIB [Suspect]
     Active Substance: LENVATINIB
     Indication: HEPATOCELLULAR CARCINOMA
     Dosage: STARTING DOSE AT 12 MILLIGRAM (FLUCTUATED DOSAGE)
     Route: 048
     Dates: start: 20191203, end: 20200519
  4. LENVATINIB [Suspect]
     Active Substance: LENVATINIB
     Route: 048
     Dates: start: 20200520, end: 20200610
  5. PROPRANOLOL [Concomitant]
     Active Substance: PROPRANOLOL HYDROCHLORIDE
     Dates: start: 201911, end: 20200619
  6. EFFIZINC [Concomitant]
     Active Substance: ZINC GLUCONATE
     Dates: start: 20200402, end: 20200611
  7. BROMAZEPAM [Concomitant]
     Active Substance: BROMAZEPAM
     Dates: start: 201911
  8. PEMBROLIZUMAB. [Suspect]
     Active Substance: PEMBROLIZUMAB
     Route: 041
     Dates: start: 20200520, end: 20200520
  9. NERISONE [Concomitant]
     Active Substance: DIFLUCORTOLONE VALERATE
     Dates: start: 20200409
  10. BIODERMA ATODERM CLEANSING OIL [Concomitant]
     Route: 061
     Dates: start: 20200402, end: 20200611
  11. PEMBROLIZUMAB. [Suspect]
     Active Substance: PEMBROLIZUMAB
     Indication: HEPATOCELLULAR CARCINOMA
     Route: 041
     Dates: start: 20191203, end: 20200430

REACTIONS (1)
  - Immune thrombocytopenia [Not Recovered/Not Resolved]

NARRATIVE: CASE EVENT DATE: 20200608
